FAERS Safety Report 8523580-3 (Version None)
Quarter: 2012Q3

REPORT INFORMATION
  Report Type: 
  Country: None (occurrence: None)
  Receive Date: 20120709
  Receipt Date: 20120622
  Transmission Date: 20120928
  Serious: Yes (Hospitalization)
  Sender: FDA-Public Use
  Company Number: TCI2012A03325

PATIENT
  Age: 67 Year
  Sex: Female

DRUGS (4)
  1. . [Concomitant]
  2. ACTOS [Suspect]
     Indication: TYPE 2 DIABETES MELLITUS
     Dosage: 15 MG (15 MG, 1D), PER ORAL
     Route: 048
     Dates: start: 20080414, end: 20100414
  3. SULFONMIDES, UREA DERIVATIVES [Concomitant]
  4. BIGUANIDES [Concomitant]

REACTIONS (2)
  - DIABETIC RETINOPATHY [None]
  - MACULAR OEDEMA [None]
